FAERS Safety Report 6774501-5 (Version None)
Quarter: 2010Q2

REPORT INFORMATION
  Report Type: 
  Country: None (occurrence: None)
  Receive Date: 20100617
  Receipt Date: 20100611
  Transmission Date: 20101027
  Serious: Yes (Life-Threatening)
  Sender: FDA-Public Use
  Company Number: FR-CELGENEUS-056-C5013-10061341

PATIENT
  Sex: Female
  Weight: 65 kg

DRUGS (2)
  1. CC-5013 [Suspect]
     Indication: MANTLE CELL LYMPHOMA
     Route: 048
     Dates: start: 20100324
  2. CC-5013 [Suspect]
     Route: 048
     Dates: start: 20100217

REACTIONS (1)
  - ANAEMIA [None]
